FAERS Safety Report 11190799 (Version 1)
Quarter: 2015Q2

REPORT INFORMATION
  Report Type: Spontaneous
  Country: NZ (occurrence: NZ)
  Receive Date: 20150615
  Receipt Date: 20150615
  Transmission Date: 20150821
  Serious: Yes (Hospitalization, Other)
  Sender: FDA-Public Use
  Company Number: NZ-GLAXOSMITHKLINE-NZ2015GSK083166

PATIENT
  Age: 76 Year
  Sex: Female

DRUGS (11)
  1. PREDNISONE. [Suspect]
     Active Substance: PREDNISONE
     Dosage: 15 UNK, UNK
  2. PREDNISONE. [Suspect]
     Active Substance: PREDNISONE
     Indication: METAMORPHOPSIA
     Dosage: 60 MG, QD
  3. POTASSIUM [Suspect]
     Active Substance: POTASSIUM
     Indication: PRODUCT USED FOR UNKNOWN INDICATION
  4. THYROXINE [Suspect]
     Active Substance: LEVOTHYROXINE
     Indication: PRODUCT USED FOR UNKNOWN INDICATION
  5. FRUSEMIDE [Suspect]
     Active Substance: FUROSEMIDE
     Indication: PRODUCT USED FOR UNKNOWN INDICATION
  6. HEPARIN [Suspect]
     Active Substance: HEPARIN SODIUM
     Indication: PULMONARY EMBOLISM
  7. PREDNISONE. [Suspect]
     Active Substance: PREDNISONE
     Indication: PHOTOPSIA
     Dosage: 40 MG, QD
  8. SALBUTAMOL [Suspect]
     Active Substance: ALBUTEROL
     Indication: PRODUCT USED FOR UNKNOWN INDICATION
  9. SOTALOL. [Suspect]
     Active Substance: SOTALOL
     Indication: PULMONARY EMBOLISM
  10. PROPRANOLOL [Suspect]
     Active Substance: PROPRANOLOL\PROPRANOLOL HYDROCHLORIDE
     Indication: PRODUCT USED FOR UNKNOWN INDICATION
  11. SPIRONOLACTONE. [Suspect]
     Active Substance: SPIRONOLACTONE
     Indication: PRODUCT USED FOR UNKNOWN INDICATION

REACTIONS (11)
  - Feeling abnormal [Unknown]
  - Tearfulness [Unknown]
  - Affect lability [Unknown]
  - Melaena [Unknown]
  - Fatigue [Unknown]
  - Malaise [Unknown]
  - Orthostatic hypertension [Unknown]
  - Syncope [Unknown]
  - Haematemesis [Unknown]
  - Muscular weakness [Unknown]
  - Productive cough [Unknown]
